FAERS Safety Report 7339286-2 (Version None)
Quarter: 2011Q1

REPORT INFORMATION
  Report Type: 
  Country: None (occurrence: None)
  Receive Date: 20110308
  Receipt Date: 20091219
  Transmission Date: 20110831
  Serious: Yes (Hospitalization, Other)
  Sender: FDA-Public Use
  Company Number: US-BAYER-200942959NA

PATIENT
  Sex: Male
  Weight: 75.737 kg

DRUGS (20)
  1. NIPRIDE [Concomitant]
     Indication: PRODUCT USED FOR UNKNOWN INDICATION
     Dosage: UNK
     Route: 041
     Dates: start: 20051011
  2. PRECEDEX [Concomitant]
     Indication: PRODUCT USED FOR UNKNOWN INDICATION
     Dosage: 0.5 MG, UNK
     Route: 041
     Dates: start: 20051013
  3. FUROSEMIDE [Concomitant]
     Indication: PRODUCT USED FOR UNKNOWN INDICATION
     Dosage: 40 MG EVERY 8 HOURS
     Route: 042
     Dates: start: 20051010
  4. NEO-SYNEPHRINOL [Concomitant]
     Indication: PRODUCT USED FOR UNKNOWN INDICATION
     Dosage: 100-150 MCG PER MINUTE
     Route: 041
     Dates: start: 20051013
  5. NATRECOR [Concomitant]
     Indication: PRODUCT USED FOR UNKNOWN INDICATION
     Dosage: 0.1 MCG/KG PER MINUTE
     Route: 041
     Dates: start: 20051009
  6. ATIVAN [Concomitant]
     Indication: ANXIETY
     Dosage: 0.5 MCG Q4H
     Route: 042
     Dates: start: 20051011
  7. GENTAMICIN [Concomitant]
     Indication: ENDOCARDITIS
     Dosage: 120 MCG Q8H
     Route: 042
     Dates: start: 20051010, end: 20051025
  8. CEFUROXIME [Concomitant]
     Indication: PRODUCT USED FOR UNKNOWN INDICATION
     Dosage: 250 MG, BID
     Route: 048
     Dates: start: 20051003, end: 20051008
  9. AMIODARONE [Concomitant]
     Indication: PRODUCT USED FOR UNKNOWN INDICATION
     Dosage: 300 MG, UNK
     Route: 042
     Dates: start: 20051013, end: 20051013
  10. NEO-SYNEPHRINOL [Concomitant]
     Dosage: 160-240 MCG BOLUS
     Route: 042
     Dates: start: 20051013, end: 20051013
  11. LASIX [Concomitant]
     Indication: PRODUCT USED FOR UNKNOWN INDICATION
     Dosage: 100 MG, UNK
     Route: 042
     Dates: start: 20051013
  12. VASOPRESSIN [Concomitant]
     Indication: PRODUCT USED FOR UNKNOWN INDICATION
     Dosage: 20 U, UNK
     Route: 042
     Dates: start: 20051013, end: 20051013
  13. EPINEPHRINE [Concomitant]
     Indication: PRODUCT USED FOR UNKNOWN INDICATION
     Dosage: 2-15 MCG PER MINUTE
     Route: 041
     Dates: start: 20051013
  14. MILRINONE [Concomitant]
     Indication: PRODUCT USED FOR UNKNOWN INDICATION
     Dosage: 0.5 MG PER KG PER MINUTE
     Route: 041
     Dates: start: 20051013
  15. UNKNOWN [Concomitant]
     Indication: PRODUCT USED FOR UNKNOWN INDICATION
     Dosage: 450
     Dates: start: 20051013
  16. TRASYLOL [Suspect]
     Indication: AORTIC VALVE REPLACEMENT
     Dosage: 200 ML FOLLOWED BY 50CC/HR INFUSION
     Route: 042
     Dates: start: 20051013, end: 20051013
  17. HEPARIN [Concomitant]
     Indication: PRODUCT USED FOR UNKNOWN INDICATION
     Dosage: 22000 U, UNK
  18. PLASMA [Concomitant]
     Indication: PRODUCT USED FOR UNKNOWN INDICATION
     Dosage: 4 U, UNK
     Dates: start: 20051013
  19. PROTAMINE SULFATE [Concomitant]
     Indication: PRODUCT USED FOR UNKNOWN INDICATION
     Dosage: 27 ML, UNK
     Route: 042
     Dates: start: 20051013, end: 20051013
  20. PLATELETS [Concomitant]
     Indication: PRODUCT USED FOR UNKNOWN INDICATION
     Dosage: 2 U, UNK

REACTIONS (21)
  - UNEVALUABLE EVENT [None]
  - RENAL FAILURE [None]
  - RENAL INJURY [None]
  - EMOTIONAL DISTRESS [None]
  - AMNESIA [None]
  - PAIN [None]
  - INJURY [None]
  - PARALYSIS [None]
  - DEPRESSION [None]
  - ANXIETY [None]
  - CONVULSION [None]
  - BRAIN STEM SYNDROME [None]
  - COGNITIVE DISORDER [None]
  - CEREBROVASCULAR ACCIDENT [None]
  - MALNUTRITION [None]
  - MULTI-ORGAN FAILURE [None]
  - FEAR [None]
  - RESPIRATORY FAILURE [None]
  - RENAL IMPAIRMENT [None]
  - STRESS [None]
  - PANIC ATTACK [None]
